FAERS Safety Report 19498626 (Version 5)
Quarter: 2021Q3

REPORT INFORMATION
  Report Type: Spontaneous
  Country: GB (occurrence: GB)
  Receive Date: 20210706
  Receipt Date: 20210908
  Transmission Date: 20211014
  Serious: Yes (Hospitalization, Other)
  Sender: FDA-Public Use
  Company Number: GB-SA-2021SA051721

PATIENT
  Age: 43 Year
  Sex: Female

DRUGS (52)
  1. TRASTUZUMAB. [Suspect]
     Active Substance: TRASTUZUMAB
     Indication: BREAST CANCER METASTATIC
     Dosage: UNK
     Route: 042
  2. BECLOMETASONE DIPROPIONATE [Concomitant]
     Active Substance: BECLOMETHASONE DIPROPIONATE
     Indication: CANCER PAIN
     Dosage: 2 DF, BID (DOSE 2 PUFF)
     Route: 055
  3. COLECALCIFEROL [Concomitant]
     Active Substance: CHOLECALCIFEROL
     Indication: PRODUCT USED FOR UNKNOWN INDICATION
     Dosage: 1 DF, BID
     Route: 048
  4. TRASTUZUMAB. [Suspect]
     Active Substance: TRASTUZUMAB
     Indication: CANCER PAIN
     Dosage: UNK
     Route: 065
  5. PERTUZUMAB. [Suspect]
     Active Substance: PERTUZUMAB
     Indication: BREAST CANCER METASTATIC
     Dosage: 840 MG, Q3W
     Route: 042
     Dates: start: 20181120
  6. PERTUZUMAB. [Suspect]
     Active Substance: PERTUZUMAB
     Indication: CANCER PAIN
     Dosage: UNK
     Route: 065
  7. CLENIL MODULITE [Concomitant]
     Active Substance: BECLOMETHASONE DIPROPIONATE
     Indication: CANCER PAIN
     Dosage: 2 DF, BID (2 PUFF)
     Route: 055
  8. OXYCODONE [Concomitant]
     Active Substance: OXYCODONE
     Dosage: 100 MG, BID
     Route: 048
  9. SODIUM PICOSULPHATE [Concomitant]
     Active Substance: SODIUM PICOSULFATE
     Indication: CONSTIPATION
     Dosage: 10 MG, QD (10 MG IN 10 ML)
     Route: 048
  10. SODIUM PICOSULPHATE [Concomitant]
     Active Substance: SODIUM PICOSULFATE
     Indication: CANCER PAIN
     Dosage: 10 MG, QD
     Route: 048
  11. CALCIUM + D3 [CALCIUM CARBONATE;COLECALCIFEROL] [Concomitant]
     Dosage: 2 DF
     Route: 048
  12. NITROFURANTOIN. [Concomitant]
     Active Substance: NITROFURANTOIN
     Indication: URINARY TRACT INFECTION
     Dosage: 50 MG, QID
     Route: 048
     Dates: start: 20181103, end: 20181109
  13. NITROFURANTOIN. [Concomitant]
     Active Substance: NITROFURANTOIN
     Indication: CANCER PAIN
     Dosage: 200 MG, QD
     Route: 048
     Dates: start: 20181103, end: 20181109
  14. CALCIUM CARBONATE. [Concomitant]
     Active Substance: CALCIUM CARBONATE
     Indication: PRODUCT USED FOR UNKNOWN INDICATION
     Dosage: 1 DF, BID
     Route: 048
  15. CLONAZEPAM. [Concomitant]
     Active Substance: CLONAZEPAM
     Indication: MUSCLE SPASMS
     Dosage: 250 MG, QD
     Route: 048
     Dates: start: 2020
  16. DOCETAXEL. [Suspect]
     Active Substance: DOCETAXEL
     Indication: BREAST CANCER METASTATIC
     Dosage: 592 MG
     Route: 042
  17. DOCETAXEL. [Suspect]
     Active Substance: DOCETAXEL
     Indication: CANCER PAIN
     Dosage: 592 MG
  18. TRASTUZUMAB. [Suspect]
     Active Substance: TRASTUZUMAB
     Indication: HER2 POSITIVE BREAST CANCER
     Dosage: 8 MG, Q3W
     Route: 042
     Dates: start: 20171108
  19. CLENIL MODULITE [Concomitant]
     Active Substance: BECLOMETHASONE DIPROPIONATE
     Indication: CANCER PAIN
     Dosage: 1 DF, QD
     Route: 055
  20. OMEPRAZOLE. [Concomitant]
     Active Substance: OMEPRAZOLE
     Indication: CANCER PAIN
     Dosage: 40 MG, QD
     Route: 048
     Dates: start: 201710
  21. QUETIAPINE. [Concomitant]
     Active Substance: QUETIAPINE
     Indication: DEPRESSED MOOD
     Dosage: 150 MG, QD
     Route: 048
     Dates: start: 2020
  22. QUETIAPINE. [Concomitant]
     Active Substance: QUETIAPINE
     Dosage: UNK UNK, QD
     Route: 048
     Dates: start: 2020
  23. SALBUTAMOL [Concomitant]
     Active Substance: ALBUTEROL
     Indication: CANCER PAIN
     Dosage: 2 DF, PRN (2 PUFFS)
     Route: 055
  24. MORPHINE [Concomitant]
     Active Substance: MORPHINE
     Indication: CANCER PAIN
     Dosage: 5 MG
     Route: 065
     Dates: start: 20181002, end: 20181002
  25. METFORMIN [Concomitant]
     Active Substance: METFORMIN HYDROCHLORIDE
     Dosage: 1000 MG, QD
     Route: 048
  26. QUETIAPINE. [Concomitant]
     Active Substance: QUETIAPINE
     Indication: CANCER PAIN
     Dosage: 100 MG, QD
     Route: 048
     Dates: start: 2020
  27. SALBUTAMOL [Concomitant]
     Active Substance: ALBUTEROL
     Dosage: 2 DF (DOSE 2 PUFF)
     Route: 055
  28. SODIUM PICOSULPHATE [Concomitant]
     Active Substance: SODIUM PICOSULFATE
     Dosage: UNK (DOSE 10 OTHER (10 MG IN 10 ML))
     Route: 048
  29. CALCIUM + D3 [CALCIUM CARBONATE;COLECALCIFEROL] [Concomitant]
     Indication: CANCER PAIN
     Dosage: 1 DF, BID
     Route: 048
  30. LINEZOLID. [Concomitant]
     Active Substance: LINEZOLID
     Indication: DEVICE RELATED INFECTION
     Dosage: 600 MG
     Route: 048
     Dates: start: 20191125, end: 20191130
  31. BECLOMETASONE DIPROPIONATE [Concomitant]
     Active Substance: BECLOMETHASONE DIPROPIONATE
     Dosage: 2 DF
     Route: 055
  32. PERTUZUMAB. [Suspect]
     Active Substance: PERTUZUMAB
     Indication: HER2 POSITIVE BREAST CANCER
     Dosage: UNK
     Route: 065
  33. OXYCODONE [Concomitant]
     Active Substance: OXYCODONE
     Dosage: 220 MG, QD
     Route: 048
  34. QUETIAPINE. [Concomitant]
     Active Substance: QUETIAPINE
     Dosage: 100 MG, QD
     Route: 048
     Dates: end: 2020
  35. VITAMIN D [COLECALCIFEROL] [Concomitant]
     Active Substance: CHOLECALCIFEROL
     Indication: PRODUCT USED FOR UNKNOWN INDICATION
     Dosage: 1 DF   0.5 DAY
     Route: 048
  36. LINEZOLID. [Concomitant]
     Active Substance: LINEZOLID
     Indication: CANCER PAIN
  37. DOCETAXEL. [Suspect]
     Active Substance: DOCETAXEL
     Indication: HER2 POSITIVE BREAST CANCER
     Dosage: 148 MG, Q3W
     Route: 042
     Dates: start: 20171108, end: 20180131
  38. TRASTUZUMAB. [Suspect]
     Active Substance: TRASTUZUMAB
     Dosage: UNK
     Route: 065
  39. LACTULOSE. [Concomitant]
     Active Substance: LACTULOSE
     Indication: CANCER PAIN
     Dosage: 10 ML, BID
     Route: 048
  40. MIRTAZAPINE. [Concomitant]
     Active Substance: MIRTAZAPINE
     Indication: CANCER PAIN
     Dosage: 45 MG, QD
     Route: 048
  41. OXYCODONE [Concomitant]
     Active Substance: OXYCODONE
     Dosage: 110 MG, BID
     Route: 048
  42. SODIUM PICOSULPHATE [Concomitant]
     Active Substance: SODIUM PICOSULFATE
     Dosage: UNK
     Route: 048
  43. ONDANSETRON [Concomitant]
     Active Substance: ONDANSETRON
     Indication: CANCER PAIN
     Dosage: 4 MG
     Route: 065
     Dates: start: 20181002, end: 20181002
  44. BECLOMETASONE DIPROPIONATE [Concomitant]
     Active Substance: BECLOMETHASONE DIPROPIONATE
     Dosage: 2 DF, BID (2 PUFF)
     Route: 055
  45. LACTULOSE. [Concomitant]
     Active Substance: LACTULOSE
     Indication: CONSTIPATION
     Dosage: 10 ML, BID (0.5 DAY)
     Route: 048
  46. OXYCODONE [Concomitant]
     Active Substance: OXYCODONE
     Indication: CANCER PAIN
     Dosage: 110 MG, BID (0.5 DAY)
     Route: 048
  47. RAMIPRIL. [Concomitant]
     Active Substance: RAMIPRIL
     Indication: CANCER PAIN
     Dosage: 1.25 MG, QD
     Route: 048
  48. CALCIUM CARBONATE. [Concomitant]
     Active Substance: CALCIUM CARBONATE
     Indication: CANCER PAIN
  49. BECLOMETASONE DIPROPIONATE [Concomitant]
     Active Substance: BECLOMETHASONE DIPROPIONATE
     Dosage: 2 DF, QD (DOSE 2 PUFF)
     Route: 055
  50. METFORMIN [Concomitant]
     Active Substance: METFORMIN HYDROCHLORIDE
     Indication: CANCER PAIN
     Dosage: 500 MG, QD
     Route: 048
  51. SIMVASTATIN. [Concomitant]
     Active Substance: SIMVASTATIN
     Indication: CANCER PAIN
     Dosage: 40 MG, QD
     Route: 048
  52. CLONAZEPAM. [Concomitant]
     Active Substance: CLONAZEPAM
     Indication: CANCER PAIN

REACTIONS (11)
  - Abdominal rigidity [Recovered/Resolved]
  - Device related infection [Recovered/Resolved]
  - Abdominal rigidity [Recovered/Resolved with Sequelae]
  - Device related infection [Recovered/Resolved]
  - Abdominal rigidity [Recovered/Resolved]
  - Muscle spasms [Recovered/Resolved with Sequelae]
  - Muscle spasms [Recovered/Resolved]
  - Muscle spasms [Recovered/Resolved]
  - Diarrhoea [Recovered/Resolved]
  - Vomiting [Recovered/Resolved]
  - Off label use [Unknown]

NARRATIVE: CASE EVENT DATE: 20181001
